FAERS Safety Report 6370146-X (Version None)
Quarter: 2009Q3

REPORT INFORMATION
  Report Type: 
  Country: None (occurrence: None)
  Receive Date: 20090923
  Receipt Date: 20071114
  Transmission Date: 20100115
  Serious: Yes (Other)
  Sender: FDA-Public Use
  Company Number: US-ASTRAZENECA-2006UW20474

PATIENT
  Age: 18139 Day
  Sex: Male
  Weight: 117.5 kg

DRUGS (24)
  1. SEROQUEL [Suspect]
     Indication: BIPOLAR DISORDER
     Route: 048
     Dates: start: 19970101, end: 20000101
  2. SEROQUEL [Suspect]
     Indication: SCHIZOPHRENIA
     Route: 048
     Dates: start: 19970101, end: 20000101
  3. SEROQUEL [Suspect]
     Route: 048
     Dates: start: 19990315
  4. SEROQUEL [Suspect]
     Route: 048
     Dates: start: 19990315
  5. ZYPREXA [Suspect]
     Route: 048
     Dates: start: 20020101, end: 20050701
  6. ZYPREXA [Suspect]
     Route: 048
     Dates: start: 20060301
  7. ZYPREXA [Suspect]
     Dosage: 5-20 MG
     Route: 048
  8. RISPERDAL [Concomitant]
  9. ZOLPIDEM TARTRATE [Concomitant]
     Indication: SLEEP DISORDER
  10. AVANDIA [Concomitant]
  11. GEMFIBROZIL [Concomitant]
     Route: 048
  12. BUPROPION HCL [Concomitant]
     Route: 048
  13. TRICOR [Concomitant]
  14. ADVICOR [Concomitant]
  15. ARTANE [Concomitant]
  16. ENALAPRIL MALEATE [Concomitant]
     Dosage: 5-20 MG DAILY
     Route: 048
  17. METFORMIN HCL [Concomitant]
     Route: 048
  18. ALBUTEROL [Concomitant]
  19. GLUCOTROL [Concomitant]
     Indication: DIABETES MELLITUS
     Route: 048
  20. PROLIXIN [Concomitant]
     Dosage: 2.5-10 MG, 1/2 AT BED TIME
  21. DESYREL [Concomitant]
  22. LEVODOPA [Concomitant]
     Dosage: 25/100
     Route: 048
  23. GLYBURIDE [Concomitant]
     Indication: DIABETES MELLITUS
     Route: 048
  24. LITHIUM [Concomitant]
     Dosage: 300-450 MG TWICE A DAY, THREE TO FOUR TIMES A DAY
     Route: 048

REACTIONS (3)
  - DIABETES MELLITUS [None]
  - HYPERGLYCAEMIA [None]
  - WEIGHT INCREASED [None]
